FAERS Safety Report 19255021 (Version 2)
Quarter: 2021Q2

REPORT INFORMATION
  Report Type: Report from Study
  Country: CA (occurrence: CA)
  Receive Date: 20210513
  Receipt Date: 20210525
  Transmission Date: 20210717
  Serious: Yes (Other)
  Sender: FDA-Public Use
  Company Number: CA-BAYER-2021-139459

PATIENT
  Sex: Female

DRUGS (1)
  1. MIRENA [Suspect]
     Active Substance: LEVONORGESTREL
     Dosage: 20 ?G PER DAY CONTINUOUSLY
     Route: 015
     Dates: start: 201803

REACTIONS (5)
  - Device breakage [None]
  - Complication of device removal [None]
  - Device expulsion [None]
  - Embedded device [Not Recovered/Not Resolved]
  - Medical device discomfort [None]

NARRATIVE: CASE EVENT DATE: 2021
